FAERS Safety Report 7223081-9 (Version None)
Quarter: 2011Q1

REPORT INFORMATION
  Report Type: 
  Country: None (occurrence: None)
  Receive Date: 20110112
  Receipt Date: 20100111
  Transmission Date: 20110831
  Serious: No
  Sender: FDA-Public Use
  Company Number: US-ALLERGAN-1000325US

PATIENT
  Sex: Female

DRUGS (7)
  1. DAILY VITAMINS [Concomitant]
  2. REFRESH PLUS [Concomitant]
  3. RESTASIS [Suspect]
     Indication: DRY EYE
     Dosage: UNK
     Route: 047
  4. LUMIGAN [Concomitant]
  5. REFRESH LIQUIGEL OPHTHALMIC [Concomitant]
  6. LOZOL [Concomitant]
  7. DIOVAN [Concomitant]

REACTIONS (1)
  - FOREIGN BODY SENSATION IN EYES [None]
